FAERS Safety Report 7624341-X (Version None)
Quarter: 2011Q3

REPORT INFORMATION
  Report Type: 
  Country: None (occurrence: None)
  Receive Date: 20110720
  Receipt Date: 20110708
  Transmission Date: 20111222
  Serious: Yes (Life-Threatening, Hospitalization)
  Sender: FDA-Public Use
  Company Number: GB-UCBSA-037179

PATIENT
  Sex: Female

DRUGS (2)
  1. CERTOLIZUMAB PEGOL [Suspect]
     Indication: RHEUMATOID ARTHRITIS
     Route: 058
     Dates: start: 20110401, end: 20110601
  2. METHOTREXATE [Concomitant]
     Dosage: 15 MG PER WEEK
     Route: 048
     Dates: start: 20090701

REACTIONS (2)
  - PNEUMONITIS [None]
  - LYMPHOPENIA [None]
